FAERS Safety Report 16207398 (Version 1)
Quarter: 2019Q2

REPORT INFORMATION
  Report Type: Spontaneous
  Country: TW (occurrence: TW)
  Receive Date: 20190417
  Receipt Date: 20190417
  Transmission Date: 20190711
  Serious: Yes (Death)
  Sender: FDA-Public Use
  Company Number: TW-PFIZER INC-2019162708

PATIENT
  Age: 61 Year
  Sex: Female
  Weight: 62 kg

DRUGS (1)
  1. SUTENT [Suspect]
     Active Substance: SUNITINIB MALATE
     Indication: PANCREATIC NEUROENDOCRINE TUMOUR
     Dosage: UNK
     Dates: start: 201412

REACTIONS (1)
  - Death [Fatal]

NARRATIVE: CASE EVENT DATE: 201705
